FAERS Safety Report 8895749 (Version 3)
Quarter: 2014Q2

REPORT INFORMATION
  Report Type: Report from Study
  Country: US (occurrence: US)
  Receive Date: 20121108
  Receipt Date: 20140514
  Transmission Date: 20141212
  Serious: Yes (Hospitalization)
  Sender: FDA-Public Use
  Company Number: US-ROCHE-1149022

PATIENT
  Age: 57 Year
  Sex: Female
  Weight: 85.26 kg

DRUGS (21)
  1. TRASTUZUMAB [Suspect]
     Indication: BREAST CANCER
     Dosage: LOADING DOSE
     Route: 042
  2. TRASTUZUMAB [Suspect]
     Dosage: DATE OF LAST DOSE PRIOR TO SAE- 11/OCT/2012
     Route: 042
  3. DOCETAXEL [Suspect]
     Indication: BREAST CANCER
     Dosage: DATE OF LAST DOSE PRIOR TO SAE- 11/OCT/2012
     Route: 042
     Dates: start: 20121011
  4. CARBOPLATIN [Suspect]
     Indication: BREAST CANCER
     Dosage: DATE OF LAST DOSE PRIOR TO SAE- 11/OCT/2012
     Route: 042
     Dates: start: 20121011
  5. METFORMIN [Concomitant]
     Route: 065
  6. ASPIRIN [Concomitant]
     Route: 065
  7. FISH OIL [Concomitant]
     Dosage: 1 CAPSULE
     Route: 065
  8. LANSOPRAZOLE [Concomitant]
     Route: 065
  9. LIPITOR [Concomitant]
     Route: 065
  10. LISINOPRIL [Concomitant]
     Route: 065
  11. NASONEX [Concomitant]
     Route: 065
  12. SUMATRIPTAN SUCCINATE [Concomitant]
     Dosage: 25-50
     Route: 065
     Dates: start: 20121015, end: 20121016
  13. SYNTHROID [Concomitant]
     Route: 065
  14. COMPAZINE SUPPOSITORIES [Concomitant]
     Route: 065
     Dates: start: 20121018
  15. ATIVAN [Concomitant]
     Route: 065
     Dates: start: 20121018
  16. INFED [Concomitant]
     Route: 065
  17. ALOXI [Concomitant]
     Dosage: PRETREATMENT OF 21 DAYS
     Route: 065
     Dates: start: 20121011
  18. RANITIDINE HCL [Concomitant]
     Dosage: PRETREATMENT OF 21 DAYS
     Route: 065
     Dates: start: 20121011
  19. TRICOR (UNITED STATES) [Concomitant]
  20. BENADRYL (UNITED STATES) [Concomitant]
     Dosage: PRETREATMENT OF 21 DAYS
     Route: 065
     Dates: start: 20121011
  21. PERTUZUMAB [Suspect]
     Indication: BREAST CANCER
     Dosage: DATE OF LAST DOSE PRIOR TO SAE- 11/OCT/2012
     Route: 042
     Dates: start: 20121011

REACTIONS (3)
  - Hypokalaemia [Not Recovered/Not Resolved]
  - Blood creatinine increased [Not Recovered/Not Resolved]
  - Dehydration [Unknown]
